FAERS Safety Report 9467029 (Version 3)
Quarter: 2014Q3

REPORT INFORMATION
  Report Type: Spontaneous
  Country: US (occurrence: US)
  Receive Date: 20130820
  Receipt Date: 20140806
  Transmission Date: 20150326
  Serious: Yes (Death, Other)
  Sender: FDA-Public Use
  Company Number: US-GLAXOSMITHKLINE-A1038249A

PATIENT
  Age: 61 Year
  Sex: Male
  Weight: 95 kg

DRUGS (7)
  1. PAXIL [Suspect]
     Active Substance: PAROXETINE HYDROCHLORIDE
     Indication: ANXIETY
     Dosage: 30MG PER DAY
     Dates: start: 2000
  2. WARFARIN [Concomitant]
     Active Substance: WARFARIN
     Dosage: 5MG PER DAY
     Dates: start: 2007
  3. ATENOLOL. [Concomitant]
     Active Substance: ATENOLOL
     Dosage: 25MG PER DAY
     Dates: start: 2007
  4. DIGOXIN. [Concomitant]
     Active Substance: DIGOXIN
     Dosage: .25MG PER DAY
     Dates: start: 2009
  5. LISINOPRIL. [Concomitant]
     Active Substance: LISINOPRIL
     Dosage: 40MG PER DAY
     Dates: start: 2011
  6. ZOCOR [Concomitant]
     Active Substance: SIMVASTATIN
     Dosage: 10MG PER DAY
     Dates: start: 2007
  7. XANAX [Concomitant]
     Active Substance: ALPRAZOLAM
     Dosage: .25MG PER DAY
     Dates: start: 2007

REACTIONS (18)
  - Pupil fixed [Unknown]
  - Nervousness [Unknown]
  - Peripheral coldness [Unknown]
  - Electrocardiogram QT prolonged [Not Recovered/Not Resolved]
  - Atrial fibrillation [Unknown]
  - Cyanosis [Unknown]
  - Sudden death [Fatal]
  - Cardiac valve disease [Unknown]
  - Emotional distress [Unknown]
  - Cardiac disorder [Unknown]
  - Cardiac arrest [Unknown]
  - Apnoea [Unknown]
  - Condition aggravated [Unknown]
  - Pulse absent [Unknown]
  - Electrocardiogram QRS complex prolonged [Unknown]
  - Electrocardiogram ST-T segment abnormal [Unknown]
  - Unresponsive to stimuli [Unknown]
  - Ventricular extrasystoles [Unknown]

NARRATIVE: CASE EVENT DATE: 2004
